FAERS Safety Report 14196584 (Version 1)
Quarter: 2017Q4

REPORT INFORMATION
  Report Type: Spontaneous
  Country: US (occurrence: US)
  Receive Date: 20171116
  Receipt Date: 20171116
  Transmission Date: 20180321
  Serious: No
  Sender: FDA-Public Use
  Company Number: US-MYLANLABS-2017M1070778

PATIENT
  Age: 52 Year
  Sex: Female

DRUGS (2)
  1. LIDOCAINE PATCH [Suspect]
     Active Substance: LIDOCAINE
     Indication: BACK PAIN
     Dosage: 1 OR 2 PATCHES FOR 12 HOURS EVERY DAY
     Route: 061
     Dates: start: 20171101, end: 20171101
  2. LIDOCAINE PATCH [Suspect]
     Active Substance: LIDOCAINE
     Indication: HYPOAESTHESIA

REACTIONS (4)
  - Off label use [Recovered/Resolved]
  - Product quality issue [Unknown]
  - No adverse event [Unknown]
  - Product adhesion issue [Recovered/Resolved]

NARRATIVE: CASE EVENT DATE: 20171101
